FAERS Safety Report 20199564 (Version 1)
Quarter: 2021Q4

REPORT INFORMATION
  Report Type: Spontaneous
  Country: US (occurrence: US)
  Receive Date: 20211217
  Receipt Date: 20211217
  Transmission Date: 20220303
  Serious: Yes (Hospitalization)
  Sender: FDA-Public Use
  Company Number: US-ORG100016242-2021000321

PATIENT

DRUGS (2)
  1. EXPAREL [Suspect]
     Active Substance: BUPIVACAINE
     Dosage: NOT PROVIDED
     Route: 065
     Dates: start: 20210713, end: 20210713
  2. LIDOCAINE [Suspect]
     Active Substance: LIDOCAINE
     Dosage: NOT PROVIDED
     Route: 042
     Dates: start: 20210714, end: 20210714

REACTIONS (2)
  - Post procedural haemorrhage [Unknown]
  - Labelled drug-drug interaction medication error [Unknown]
